FAERS Safety Report 6980103-8 (Version None)
Quarter: 2010Q3

REPORT INFORMATION
  Report Type: 
  Country: None (occurrence: None)
  Receive Date: 20100914
  Receipt Date: 20100902
  Transmission Date: 20110219
  Serious: Yes (Other)
  Sender: FDA-Public Use
  Company Number: US-JNJFOC-20100902387

PATIENT
  Sex: Female

DRUGS (4)
  1. CONCENTRATED MOTRIN INFANTS DROPS [Suspect]
  2. CONCENTRATED MOTRIN INFANTS DROPS [Suspect]
     Indication: TEETHING
  3. CONCENTRATED TYLENOL INFANT DROPS [Suspect]
  4. CONCENTRATED TYLENOL INFANT DROPS [Suspect]
     Indication: TEETHING

REACTIONS (2)
  - HYPERSENSITIVITY [None]
  - PRODUCT QUALITY ISSUE [None]
